FAERS Safety Report 24678929 (Version 1)
Quarter: 2024Q4

REPORT INFORMATION
  Report Type: Spontaneous
  Country: US (occurrence: US)
  Receive Date: 20241129
  Receipt Date: 20241129
  Transmission Date: 20250115
  Serious: Yes (Other)
  Sender: PHARMING GROUP
  Company Number: US-PHARMING-PHAUS2024001118

PATIENT

DRUGS (2)
  1. RUCONEST [Suspect]
     Active Substance: CONESTAT ALFA
     Indication: Maternal exposure during pregnancy
     Dosage: UNK
     Route: 064
  2. RUCONEST [Suspect]
     Active Substance: CONESTAT ALFA
     Indication: Maternal exposure during breast feeding
     Dosage: UNK
     Route: 063

REACTIONS (1)
  - Urinary retention [Recovered/Resolved]
